FAERS Safety Report 9136703 (Version 1)
Quarter: 2013Q1

REPORT INFORMATION
  Report Type: Spontaneous
  Country: US (occurrence: US)
  Receive Date: 20130304
  Receipt Date: 20130304
  Transmission Date: 20140127
  Serious: No
  Sender: FDA-Public Use
  Company Number: US-ABBOTT-12P-163-0948920-00

PATIENT
  Age: 48 None
  Sex: Male
  Weight: 100.79 kg

DRUGS (3)
  1. ANDROGEL 1% [Suspect]
     Indication: BLOOD TESTOSTERONE DECREASED
     Dosage: 6 PUMPS A DAY
     Dates: start: 20100105, end: 201107
  2. ANDROGEL 1% [Suspect]
     Dosage: 8 PUMPS A DAY
     Dates: start: 201012
  3. ANDROGEL 1.62% [Suspect]
     Indication: BLOOD TESTOSTERONE DECREASED
     Dosage: 4 PUMPS PER DAY

REACTIONS (3)
  - Incorrect dose administered [Unknown]
  - Blood testosterone decreased [Not Recovered/Not Resolved]
  - Drug dispensing error [Unknown]
